FAERS Safety Report 8368606-5 (Version None)
Quarter: 2012Q2

REPORT INFORMATION
  Report Type: 
  Country: None (occurrence: None)
  Receive Date: 20120518
  Receipt Date: 20120430
  Transmission Date: 20120825
  Serious: No
  Sender: FDA-Public Use
  Company Number: US-BIOGENIDEC-2012BI015465

PATIENT
  Age: 53 Year
  Sex: Male

DRUGS (3)
  1. TYSABRI [Suspect]
     Indication: MULTIPLE SCLEROSIS
     Route: 042
     Dates: start: 20070424, end: 20080617
  2. TYSABRI [Suspect]
     Route: 042
     Dates: start: 20100820
  3. TYSABRI [Suspect]
     Route: 042
     Dates: start: 20090220, end: 20100820

REACTIONS (2)
  - PARAESTHESIA [None]
  - MEMORY IMPAIRMENT [None]
